FAERS Safety Report 21594143 (Version 2)
Quarter: 2023Q4

REPORT INFORMATION
  Report Type: Spontaneous
  Country: US (occurrence: US)
  Receive Date: 20221115
  Receipt Date: 20231123
  Transmission Date: 20240110
  Serious: Yes (Hospitalization, Other)
  Sender: FDA-Public Use
  Company Number: US-SUN PHARMACEUTICAL INDUSTRIES LTD-2022R1-363534

PATIENT
  Age: 7 Year
  Sex: Male
  Weight: 37 kg

DRUGS (5)
  1. DEXAMETHASONE [Suspect]
     Active Substance: DEXAMETHASONE
     Indication: Hypersensitivity
     Dosage: 12 MILLIGRAM
     Route: 065
  2. LEVETIRACETAM [Suspect]
     Active Substance: LEVETIRACETAM
     Indication: Generalised tonic-clonic seizure
     Dosage: 20 MILLIGRAM/KILOGRAM
     Route: 065
  3. DIPHENHYDRAMINE [Suspect]
     Active Substance: DIPHENHYDRAMINE
     Indication: Hypersensitivity
     Dosage: 37 MILLIGRAM
     Route: 042
  4. EPINEPHRINE [Suspect]
     Active Substance: EPINEPHRINE
     Indication: Hypersensitivity
     Dosage: 0.3 MILLIGRAM
     Route: 042
  5. LORAZEPAM [Suspect]
     Active Substance: LORAZEPAM
     Indication: Generalised tonic-clonic seizure
     Dosage: 2 MILLIGRAM
     Route: 042

REACTIONS (4)
  - Hallucination [Recovered/Resolved]
  - Agitation [Recovering/Resolving]
  - Tachycardia [Unknown]
  - Incoherent [Unknown]
